FAERS Safety Report 9567847 (Version 1)
Quarter: 2013Q3

REPORT INFORMATION
  Report Type: Spontaneous
  Country: US (occurrence: US)
  Receive Date: 20130930
  Receipt Date: 20130930
  Transmission Date: 20140515
  Serious: No
  Sender: FDA-Public Use
  Company Number: US-AMGEN-USASP2013032191

PATIENT
  Age: 49 Year
  Sex: Female
  Weight: 62.59 kg

DRUGS (6)
  1. ENBREL [Suspect]
     Indication: PRODUCT USED FOR UNKNOWN INDICATION
     Dosage: 50 MG, QWK
     Route: 058
  2. MULTIVITAMIN                       /00097801/ [Concomitant]
     Dosage: UNK
     Route: 048
  3. METHOTREXATE [Concomitant]
     Dosage: 2.5 MG, UNK
     Route: 048
  4. ALLEGRA [Concomitant]
     Dosage: 30 MG, UNK
     Route: 048
  5. PLAQUENIL                          /00072602/ [Concomitant]
     Dosage: 200 MG, UNK
     Route: 048
  6. PREDNISONE [Concomitant]
     Dosage: 1 MG, UNK
     Route: 048

REACTIONS (2)
  - Sinusitis [Unknown]
  - Nasopharyngitis [Unknown]
